FAERS Safety Report 19008668 (Version 1)
Quarter: 2021Q1

REPORT INFORMATION
  Report Type: Spontaneous
  Country: JP (occurrence: JP)
  Receive Date: 20210315
  Receipt Date: 20210315
  Transmission Date: 20210420
  Serious: Yes (Death, Other)
  Sender: FDA-Public Use
  Company Number: JP-BRISTOL-MYERS SQUIBB COMPANY-BMS-2020-089555

PATIENT
  Age: 79 Year
  Sex: Female

DRUGS (1)
  1. OPDIVO [Suspect]
     Active Substance: NIVOLUMAB
     Indication: HEAD AND NECK CANCER
     Dosage: 240 MILLIGRAM, Q2WK
     Route: 041
     Dates: start: 20200826

REACTIONS (3)
  - Malignant neoplasm progression [Fatal]
  - Malaise [Recovered/Resolved]
  - Head and neck cancer [Fatal]

NARRATIVE: CASE EVENT DATE: 20200827
